FAERS Safety Report 12723838 (Version 2)
Quarter: 2016Q3

REPORT INFORMATION
  Report Type: Spontaneous
  Country: US (occurrence: US)
  Receive Date: 20160908
  Receipt Date: 20160915
  Transmission Date: 20161109
  Serious: Yes (Other)
  Sender: FDA-Public Use
  Company Number: US-CATALENT PHARMA SOLUTIONS-CAT-000059-2016

PATIENT
  Sex: Female

DRUGS (2)
  1. NON-PROPRANOLOL [Suspect]
     Active Substance: PROPRANOLOL HYDROCHLORIDE
     Indication: PRODUCT USED FOR UNKNOWN INDICATION
     Dosage: 2.5 MG, EVERY 6 HOURS
     Route: 065
  2. MEXILETINE [Suspect]
     Active Substance: MEXILETINE
     Indication: GENE MUTATION
     Dosage: 4.5 MG/KG, TID
     Route: 048

REACTIONS (2)
  - Torsade de pointes [Recovered/Resolved]
  - Necrotising colitis [None]
